FAERS Safety Report 8781206 (Version 1)
Quarter: 2012Q4

REPORT INFORMATION
  Report Type: 
  Country: ES (occurrence: ES)
  Receive Date: 20120913
  Receipt Date: 20120913
  Transmission Date: 20130627
  Serious: Yes (Hospitalization)
  Sender: FDA-Public Use
  Company Number: PHHY2012ES079320

PATIENT
  Age: 87 Year
  Sex: Male

DRUGS (4)
  1. ZOMETA [Suspect]
     Indication: PROSTATE CANCER
     Dosage: UNK UKN, UNK
  2. NOLOTIL [Concomitant]
     Dosage: UNK UKN, UNK
  3. TORASEMIDE [Concomitant]
     Dosage: UNK UKN, UNK
  4. ISOPROLOL [Concomitant]
     Dosage: UNK UKN, UNK

REACTIONS (5)
  - General physical health deterioration [Unknown]
  - Pyrexia [Unknown]
  - Vomiting [Unknown]
  - Hypocalcaemia [Unknown]
  - Hypokalaemia [Unknown]
